FAERS Safety Report 12608430 (Version 11)
Quarter: 2018Q3

REPORT INFORMATION
  Report Type: Report from Study
  Country: CO (occurrence: CO)
  Receive Date: 20160729
  Receipt Date: 20180830
  Transmission Date: 20181010
  Serious: Yes (Hospitalization)
  Sender: FDA-Public Use
  Company Number: PHHY2016CO048524

PATIENT
  Age: 54 Year
  Sex: Female
  Weight: 68 kg

DRUGS (4)
  1. SANDOSTATIN LAR DEPOT [Suspect]
     Active Substance: OCTREOTIDE ACETATE
     Dosage: 30 MG, EVERY 45 DAYS
     Route: 030
     Dates: start: 20180525
  2. SANDOSTATIN LAR DEPOT [Suspect]
     Active Substance: OCTREOTIDE ACETATE
     Dosage: 30 MG, QMO
     Route: 030
     Dates: start: 20060203, end: 201607
  3. SANDOSTATIN LAR DEPOT [Suspect]
     Active Substance: OCTREOTIDE ACETATE
     Indication: ACROMEGALY
     Dosage: 20 MG, UNK
     Route: 030
     Dates: start: 2006
  4. SANDOSTATIN LAR DEPOT [Suspect]
     Active Substance: OCTREOTIDE ACETATE
     Dosage: 30 MG, EVERY 45 DAYS
     Route: 030
     Dates: start: 20060712

REACTIONS (11)
  - Drug prescribing error [Unknown]
  - Diarrhoea [Unknown]
  - Influenza [Unknown]
  - Gastrointestinal disorder [Unknown]
  - Blood glucose increased [Recovering/Resolving]
  - Bladder neoplasm [Unknown]
  - Inappropriate schedule of drug administration [Unknown]
  - Aphonia [Unknown]
  - Colon neoplasm [Unknown]
  - Urinary tract infection [Unknown]
  - Malaise [Unknown]

NARRATIVE: CASE EVENT DATE: 20160705
